FAERS Safety Report 24242071 (Version 1)
Quarter: 2024Q3

REPORT INFORMATION
  Report Type: Spontaneous
  Country: US (occurrence: None)
  Receive Date: 20240822
  Receipt Date: 20240822
  Transmission Date: 20241017
  Serious: Yes (Hospitalization)
  Sender: Public
  Company Number: None

PATIENT
  Sex: Female

DRUGS (1)
  1. COSENTYX [Suspect]
     Active Substance: SECUKINUMAB
     Indication: Hidradenitis
     Dosage: 300MG EVERY 2 WEEKS UNDER THE SKIN?
     Route: 058
     Dates: start: 202402

REACTIONS (2)
  - COVID-19 [None]
  - Therapy interrupted [None]
